FAERS Safety Report 9791825 (Version 4)
Quarter: 2014Q1

REPORT INFORMATION
  Report Type: Spontaneous
  Country: JP (occurrence: JP)
  Receive Date: 20140102
  Receipt Date: 20140228
  Transmission Date: 20141002
  Serious: Yes (Life-Threatening, Hospitalization, Other)
  Sender: FDA-Public Use
  Company Number: JP-BRACCO-007605

PATIENT
  Age: 90 Year
  Sex: Female
  Weight: 34 kg

DRUGS (1)
  1. IOPAMIRON [Suspect]
     Indication: ANGIOGRAM
     Route: 013
     Dates: start: 20131128, end: 20131128

REACTIONS (2)
  - Shock [Recovered/Resolved]
  - Cerebral infarction [Unknown]
